FAERS Safety Report 19226332 (Version 4)
Quarter: 2022Q4

REPORT INFORMATION
  Report Type: Spontaneous
  Country: US (occurrence: US)
  Receive Date: 20210506
  Receipt Date: 20221006
  Transmission Date: 20230113
  Serious: Yes (Hospitalization, Other)
  Sender: FDA-Public Use
  Company Number: US-PFIZER INC-2021469815

PATIENT
  Age: 68 Year
  Sex: Male
  Weight: 90.703 kg

DRUGS (1)
  1. XELJANZ XR [Suspect]
     Active Substance: TOFACITINIB CITRATE
     Indication: Rheumatoid arthritis
     Dosage: 11 MG, 1X/DAY
     Dates: start: 202007

REACTIONS (4)
  - Throat cancer [Not Recovered/Not Resolved]
  - Speech disorder [Unknown]
  - Weight decreased [Unknown]
  - Hypoacusis [Unknown]
